FAERS Safety Report 15703648 (Version 1)
Quarter: 2018Q4

REPORT INFORMATION
  Report Type: Spontaneous
  Country: US (occurrence: US)
  Receive Date: 20181210
  Receipt Date: 20181210
  Transmission Date: 20190205
  Serious: Yes (Hospitalization)
  Sender: FDA-Public Use
  Company Number: None

PATIENT
  Age: 35 Year
  Sex: Female
  Weight: 54.2 kg

DRUGS (3)
  1. AMIKACIN. [Concomitant]
     Active Substance: AMIKACIN
     Dates: start: 20181201
  2. IMIPENEM [Concomitant]
     Active Substance: IMIPENEM
     Dates: start: 20181204
  3. TIGECYCLINE. [Suspect]
     Active Substance: TIGECYCLINE
     Indication: BRONCHIECTASIS
     Route: 041
     Dates: start: 20181205, end: 20181206

REACTIONS (4)
  - Nausea [None]
  - Vomiting [None]
  - Fatigue [None]
  - Posture abnormal [None]

NARRATIVE: CASE EVENT DATE: 20181206
